FAERS Safety Report 19886253 (Version 2)
Quarter: 2025Q3

REPORT INFORMATION
  Report Type: Spontaneous
  Country: EU (occurrence: EU)
  Receive Date: 20210928
  Receipt Date: 20250930
  Transmission Date: 20251021
  Serious: Yes (Other)
  Sender: CELLTRION
  Company Number: EU-CELLTRION INC.-2021FR012920

PATIENT

DRUGS (17)
  1. RITUXIMAB [Suspect]
     Active Substance: RITUXIMAB
     Indication: Chronic graft versus host disease in skin
     Route: 065
  2. RITUXIMAB [Suspect]
     Active Substance: RITUXIMAB
     Indication: Acute biphenotypic leukaemia
     Route: 065
  3. ENVARSUS XR [Suspect]
     Active Substance: TACROLIMUS
     Indication: Acute biphenotypic leukaemia
     Route: 065
  4. ENVARSUS XR [Suspect]
     Active Substance: TACROLIMUS
     Indication: Chronic graft versus host disease in skin
     Route: 065
  5. METHOTREXATE [Suspect]
     Active Substance: METHOTREXATE
     Indication: Acute biphenotypic leukaemia
  6. METHOTREXATE [Suspect]
     Active Substance: METHOTREXATE
     Indication: Chronic graft versus host disease in skin
  7. PREDNISONE [Suspect]
     Active Substance: PREDNISONE
     Indication: Acute biphenotypic leukaemia
     Route: 048
  8. PREDNISONE [Suspect]
     Active Substance: PREDNISONE
     Indication: Chronic graft versus host disease in skin
     Route: 048
  9. PREDNISONE [Suspect]
     Active Substance: PREDNISONE
  10. MYCOPHENOLATE MOFETIL [Suspect]
     Active Substance: MYCOPHENOLATE MOFETIL
     Indication: Acute biphenotypic leukaemia
     Route: 065
  11. MYCOPHENOLATE MOFETIL [Suspect]
     Active Substance: MYCOPHENOLATE MOFETIL
     Indication: Chronic graft versus host disease in skin
     Route: 065
  12. MYCOPHENOLATE MOFETIL [Suspect]
     Active Substance: MYCOPHENOLATE MOFETIL
  13. IMATINIB [Suspect]
     Active Substance: IMATINIB
     Indication: Acute biphenotypic leukaemia
     Route: 065
  14. IMATINIB [Suspect]
     Active Substance: IMATINIB
     Indication: Chronic graft versus host disease in skin
     Route: 065
  15. IMATINIB [Suspect]
     Active Substance: IMATINIB
  16. TACROLIMUS [Suspect]
     Active Substance: TACROLIMUS
     Indication: Chronic graft versus host disease in skin
  17. TACROLIMUS [Suspect]
     Active Substance: TACROLIMUS
     Indication: Acute biphenotypic leukaemia
     Route: 065

REACTIONS (8)
  - Chronic graft versus host disease in skin [Recovered/Resolved]
  - Chronic graft versus host disease [Recovered/Resolved]
  - Dry eye [Recovered/Resolved]
  - Obliterative bronchiolitis [Recovered/Resolved]
  - Therapy non-responder [Unknown]
  - Off label use [Unknown]
  - Off label use [Unknown]
  - Intentional product use issue [Unknown]
